FAERS Safety Report 19731638 (Version 2)
Quarter: 2021Q3

REPORT INFORMATION
  Report Type: Spontaneous
  Country: SE (occurrence: SE)
  Receive Date: 20210820
  Receipt Date: 20210928
  Transmission Date: 20211014
  Serious: Yes (Other)
  Sender: FDA-Public Use
  Company Number: SE-ROCHE-2890678

PATIENT
  Age: 73 Year
  Sex: Female
  Weight: 63 kg

DRUGS (2)
  1. DIVIGEL [Concomitant]
     Active Substance: ESTRADIOL
  2. ENTRECTINIB [Suspect]
     Active Substance: ENTRECTINIB
     Indication: NON-SMALL CELL LUNG CANCER
     Dosage: 3?4 WEEKS
     Route: 048
     Dates: start: 20210712

REACTIONS (7)
  - Gait disturbance [Recovering/Resolving]
  - Sensory loss [Not Recovered/Not Resolved]
  - Visual impairment [Recovering/Resolving]
  - Dizziness [Recovering/Resolving]
  - Incontinence [Not Recovered/Not Resolved]
  - Cognitive disorder [Recovered/Resolved]
  - Anxiety [Unknown]

NARRATIVE: CASE EVENT DATE: 20210715
